FAERS Safety Report 7205169-1 (Version None)
Quarter: 2010Q4

REPORT INFORMATION
  Report Type: 
  Country: None (occurrence: None)
  Receive Date: 20101231
  Receipt Date: 20101222
  Transmission Date: 20110411
  Serious: Yes (Death)
  Sender: FDA-Public Use
  Company Number: US-BIOGENIDEC-2010BI006314

PATIENT
  Age: 68 Year
  Sex: Female

DRUGS (3)
  1. AVONEX [Suspect]
     Indication: MULTIPLE SCLEROSIS
     Route: 030
     Dates: start: 19970619, end: 20060120
  2. AVONEX [Suspect]
     Route: 030
     Dates: start: 20090219
  3. AVONEX [Suspect]
     Route: 030
     Dates: start: 20070614, end: 20080720

REACTIONS (1)
  - PNEUMONIA [None]
